FAERS Safety Report 23742349 (Version 1)
Quarter: 2024Q2

REPORT INFORMATION
  Report Type: Spontaneous
  Country: US (occurrence: None)
  Receive Date: 20240412
  Receipt Date: 20240412
  Transmission Date: 20240716
  Serious: Yes (Life-Threatening, Hospitalization)
  Sender: FDA-Public Use
  Company Number: None

PATIENT
  Age: 26 Year
  Sex: Female
  Weight: 50.9 kg

DRUGS (14)
  1. AUVELITY [Suspect]
     Active Substance: BUPROPION HYDROCHLORIDE\DEXTROMETHORPHAN HYDROBROMIDE
     Dosage: 30 TOT-TOTAL
     Dates: start: 20240328
  2. CEPHALEXIN [Concomitant]
     Active Substance: CEPHALEXIN
  3. amphetamine/dexamphetamine [Concomitant]
  4. DIAZEPAM [Concomitant]
     Active Substance: DIAZEPAM
  5. DULOXETINE [Concomitant]
     Active Substance: DULOXETINE
  6. GABAPENTIN [Concomitant]
     Active Substance: GABAPENTIN
  7. HYDROXYCHLOROQUINE [Concomitant]
     Active Substance: HYDROXYCHLOROQUINE
  8. IBUPROFEN [Concomitant]
     Active Substance: IBUPROFEN
  9. KETOROLAC [Concomitant]
     Active Substance: KETOROLAC TROMETHAMINE
  10. KCL [Concomitant]
     Active Substance: POTASSIUM CHLORIDE
  11. PROPRANOLOL [Concomitant]
     Active Substance: PROPRANOLOL HYDROCHLORIDE
  12. TIZANIDINE [Concomitant]
     Active Substance: TIZANIDINE
  13. ARIPIPRAZOLE [Concomitant]
     Active Substance: ARIPIPRAZOLE
  14. CELECOXIB [Concomitant]
     Active Substance: CELECOXIB

REACTIONS (1)
  - Serotonin syndrome [None]

NARRATIVE: CASE EVENT DATE: 20240411
